FAERS Safety Report 10893674 (Version 2)
Quarter: 2015Q4

REPORT INFORMATION
  Report Type: Report from Study
  Country: IT (occurrence: IT)
  Receive Date: 20150306
  Receipt Date: 20151216
  Transmission Date: 20160304
  Serious: No
  Sender: FDA-Public Use
  Company Number: IT-ABBVIE-15P-083-1353920-00

PATIENT
  Age: 75 Year
  Sex: Female
  Weight: 78 kg

DRUGS (1)
  1. DUODOPA [Suspect]
     Active Substance: CARBIDOPA\LEVODOPA
     Indication: PARKINSON^S DISEASE
     Dosage: MD 10,0 (+3 ML)?CR  5,0 ML/H?ED 3,5 ML
     Route: 050
     Dates: start: 20140113

REACTIONS (1)
  - Granuloma [Not Recovered/Not Resolved]

NARRATIVE: CASE EVENT DATE: 201501
